FAERS Safety Report 6389954-4 (Version None)
Quarter: 2009Q4

REPORT INFORMATION
  Report Type: 
  Country: None (occurrence: None)
  Receive Date: 20091006
  Receipt Date: 20090609
  Transmission Date: 20100525
  Serious: No
  Sender: FDA-Public Use
  Company Number: US-BRISTOL-MYERS SQUIBB COMPANY-14656219

PATIENT
  Age: 66 Year
  Sex: Female
  Weight: 73 kg

DRUGS (7)
  1. AVAPRO [Suspect]
     Indication: HYPERTENSION
     Dates: start: 20090501
  2. LUNESTA [Concomitant]
  3. PRAZSOIN HCL [Concomitant]
  4. ALTACE [Concomitant]
  5. AMARYL [Concomitant]
  6. CARTIA XT [Concomitant]
  7. CLONIDINE [Concomitant]

REACTIONS (1)
  - RASH [None]
